FAERS Safety Report 5261753-6 (Version None)
Quarter: 2007Q1

REPORT INFORMATION
  Report Type: 
  Country: None (occurrence: None)
  Receive Date: 20061215
  Receipt Date: 20060612
  Transmission Date: 20070707
  Serious: Yes (Life-Threatening)
  Sender: FDA-Public Use
  Company Number: 06H-163-0308474-00

PATIENT
  Sex: Female

DRUGS (3)
  1. MORPHINE SULFATE INJ [Suspect]
     Indication: POSTOPERATIVE CARE
     Dosage: 2 MG, 10 MIN LOCKOUT, INTRAVENOUS
     Route: 042
     Dates: start: 20060101, end: 20060101
  2. MORPHINE SULFATE INJ [Suspect]
     Indication: SPINAL FUSION SURGERY
     Dosage: 2 MG, 10 MIN LOCKOUT, INTRAVENOUS
     Route: 042
     Dates: start: 20060101, end: 20060101
  3. LACTATED RINGER'S [Suspect]
     Indication: DRUG USE FOR UNKNOWN INDICATION
     Dosage: 125ML/HR, INTRAVENOUS
     Route: 042
     Dates: start: 20060101, end: 20060101

REACTIONS (1)
  - RESPIRATORY ARREST [None]
